FAERS Safety Report 10874182 (Version 8)
Quarter: 2016Q2

REPORT INFORMATION
  Report Type: Report from Study
  Country: US (occurrence: US)
  Receive Date: 20150227
  Receipt Date: 20160519
  Transmission Date: 20160815
  Serious: Yes (Hospitalization, Other)
  Sender: FDA-Public Use
  Company Number: US-SA-2014SA129273

PATIENT
  Age: 55 Year
  Sex: Female
  Weight: 110 kg

DRUGS (11)
  1. AUBAGIO [Suspect]
     Active Substance: TERIFLUNOMIDE
     Indication: MULTIPLE SCLEROSIS
     Route: 048
     Dates: start: 201411, end: 20150225
  2. AUBAGIO [Suspect]
     Active Substance: TERIFLUNOMIDE
     Indication: MULTIPLE SCLEROSIS
     Route: 048
     Dates: start: 20150227
  3. AUBAGIO [Suspect]
     Active Substance: TERIFLUNOMIDE
     Indication: MULTIPLE SCLEROSIS
     Route: 048
     Dates: start: 20140903
  4. AUBAGIO [Suspect]
     Active Substance: TERIFLUNOMIDE
     Indication: MULTIPLE SCLEROSIS
     Route: 048
     Dates: start: 20140919
  5. AUBAGIO [Suspect]
     Active Substance: TERIFLUNOMIDE
     Indication: MULTIPLE SCLEROSIS
     Route: 048
     Dates: start: 20150227
  6. AUBAGIO [Suspect]
     Active Substance: TERIFLUNOMIDE
     Indication: MULTIPLE SCLEROSIS
     Route: 048
     Dates: start: 2013
  7. AUBAGIO [Suspect]
     Active Substance: TERIFLUNOMIDE
     Indication: MULTIPLE SCLEROSIS
     Route: 048
     Dates: start: 201411, end: 20150225
  8. ACETAMINOPHEN. [Concomitant]
     Active Substance: ACETAMINOPHEN
     Indication: HEADACHE
  9. BACLOFEN. [Concomitant]
     Active Substance: BACLOFEN
     Dates: end: 2014
  10. PREDNISONE. [Concomitant]
     Active Substance: PREDNISONE
  11. MIRABEGRON [Concomitant]
     Active Substance: MIRABEGRON
     Indication: POLLAKIURIA
     Dates: start: 20140919

REACTIONS (26)
  - Urinary incontinence [Not Recovered/Not Resolved]
  - Slow speech [Recovering/Resolving]
  - Central nervous system lesion [Unknown]
  - Skin lesion [Unknown]
  - Feeling abnormal [Unknown]
  - Stress [Unknown]
  - Abdominal discomfort [Unknown]
  - Diarrhoea [Unknown]
  - Bladder disorder [Unknown]
  - Gingival disorder [Unknown]
  - Contusion [Unknown]
  - Drug dose omission [Unknown]
  - Paraesthesia [Unknown]
  - Pollakiuria [Not Recovered/Not Resolved]
  - Gait disturbance [Recovering/Resolving]
  - Bradyphrenia [Recovering/Resolving]
  - Balance disorder [Unknown]
  - Drug ineffective [Unknown]
  - Vomiting [Unknown]
  - Surgery [Unknown]
  - Renal disorder [Unknown]
  - Mobility decreased [Recovering/Resolving]
  - Dysarthria [Unknown]
  - Ill-defined disorder [Unknown]
  - Osteoporosis [Not Recovered/Not Resolved]
  - Drug effect decreased [Unknown]

NARRATIVE: CASE EVENT DATE: 201412
